FAERS Safety Report 9458432 (Version 1)
Quarter: 2013Q3

REPORT INFORMATION
  Report Type: Spontaneous
  Country: BR (occurrence: BR)
  Receive Date: 20130814
  Receipt Date: 20130814
  Transmission Date: 20140515
  Serious: Yes (Life-Threatening, Other)
  Sender: FDA-Public Use
  Company Number: PHHY2013BR063667

PATIENT
  Sex: Female

DRUGS (2)
  1. DONEPEZIL [Suspect]
     Dosage: 2 DF, UNK
  2. DONEPEZIL [Suspect]
     Dosage: 1 DF, UNK

REACTIONS (6)
  - Feeling abnormal [Unknown]
  - Circulatory collapse [Unknown]
  - Syncope [Unknown]
  - Vomiting [Unknown]
  - Diarrhoea [Unknown]
  - Malaise [Unknown]
